FAERS Safety Report 20430393 (Version 1)
Quarter: 2022Q1

REPORT INFORMATION
  Report Type: Report from Study
  Country: FR (occurrence: FR)
  Receive Date: 20220204
  Receipt Date: 20220204
  Transmission Date: 20220424
  Serious: Yes (Hospitalization)
  Sender: FDA-Public Use
  Company Number: FR-SERVIER-S20007041

PATIENT

DRUGS (7)
  1. PEGASPARGASE [Suspect]
     Active Substance: PEGASPARGASE
     Indication: Acute lymphocytic leukaemia
     Dosage: 1250 IU/L ON D6
     Route: 042
     Dates: start: 2020, end: 2020
  2. CYTARABINE [Suspect]
     Active Substance: CYTARABINE
     Indication: Infection prophylaxis
     Dosage: 2 MG/M2, BID ON D1D2
     Route: 042
  3. MITOXANTRONE [Suspect]
     Active Substance: MITOXANTRONE HYDROCHLORIDE
     Indication: Infection prophylaxis
     Dosage: 8 MG ON D2, D3
     Route: 042
     Dates: start: 2020, end: 2020
  4. ETOPOSIDE [Suspect]
     Active Substance: ETOPOSIDE
     Indication: Infection prophylaxis
     Dosage: 150 MG/M2 D3 D4 D5
     Dates: start: 2020, end: 2020
  5. DEXAMETHASONE [Suspect]
     Active Substance: DEXAMETHASONE
     Indication: Acute lymphocytic leukaemia
     Dosage: 20 MG/M2, BID DAYS D1-D5
     Route: 048
     Dates: start: 2020, end: 2020
  6. DEXAMETHASONE [Suspect]
     Active Substance: DEXAMETHASONE
     Dosage: 10 MG/M2, BID DAY 6
     Route: 048
     Dates: start: 2020, end: 2020
  7. COTRIMOXAZOLE [Concomitant]
     Active Substance: SULFAMETHOXAZOLE\TRIMETHOPRIM
     Indication: Infection prophylaxis
     Dosage: 240 MG
     Route: 048

REACTIONS (1)
  - Sepsis [Recovered/Resolved]

NARRATIVE: CASE EVENT DATE: 20200605
